FAERS Safety Report 16332626 (Version 4)
Quarter: 2019Q2

REPORT INFORMATION
  Report Type: Report from Study
  Country: FR (occurrence: FR)
  Receive Date: 20190520
  Receipt Date: 20190615
  Transmission Date: 20190711
  Serious: Yes (Death)
  Sender: FDA-Public Use
  Company Number: FR-ROCHE-2320318

PATIENT
  Age: 13 Year
  Sex: Female
  Weight: 42.2 kg

DRUGS (3)
  1. ATEZOLIZUMAB. [Suspect]
     Active Substance: ATEZOLIZUMAB
     Indication: NEOPLASM
     Dosage: ATEZOLIZUMAB WILL BE ADMINISTERED AS IV INFUSION (MAXIMUM 1200 MG) ON DAY 1 OF EACH 21-DAY CYCLE AS
     Route: 042
     Dates: start: 20160929
  2. NIVOLUMAB [Concomitant]
     Active Substance: NIVOLUMAB
  3. DEXERYL [GLYCEROL;PARAFFIN, LIQUID;WHITE SOFT PARAFFIN] [Concomitant]
     Active Substance: GLYCERIN\MINERAL OIL\PETROLATUM
     Indication: DRY SKIN
     Route: 065

REACTIONS (1)
  - Graft versus host disease [Fatal]

NARRATIVE: CASE EVENT DATE: 20170518
